FAERS Safety Report 20388348 (Version 2)
Quarter: 2022Q1

REPORT INFORMATION
  Report Type: Spontaneous
  Country: US (occurrence: US)
  Receive Date: 20220128
  Receipt Date: 20220202
  Transmission Date: 20220423
  Serious: No
  Sender: FDA-Public Use
  Company Number: US-SANOFI-00938795

PATIENT
  Age: 60 Year
  Sex: Female

DRUGS (1)
  1. LANTUS SOLOSTAR [Suspect]
     Active Substance: INSULIN GLARGINE
     Indication: Type 2 diabetes mellitus
     Dosage: 75 IU, QD

REACTIONS (3)
  - Injection site bruising [Unknown]
  - Needle issue [Unknown]
  - Wrong technique in product usage process [Unknown]
